FAERS Safety Report 12765439 (Version 1)
Quarter: 2016Q3

REPORT INFORMATION
  Report Type: Spontaneous
  Country: HR (occurrence: HR)
  Receive Date: 20160921
  Receipt Date: 20160921
  Transmission Date: 20161109
  Serious: Yes (Hospitalization, Other)
  Sender: FDA-Public Use
  Company Number: HR-TEVA-692691ACC

PATIENT
  Age: 34 Year
  Sex: Male

DRUGS (3)
  1. DINAMICO [Suspect]
     Active Substance: SILDENAFIL CITRATE
     Dosage: UNSPECIFIED FORMULATION
     Route: 048
  2. MELPERON [Suspect]
     Active Substance: MELPERONE
     Dosage: UNSPECIFIED FORMULATION
     Route: 048
  3. STARTICIN [Suspect]
     Active Substance: CITALOPRAM HYDROBROMIDE
     Dosage: UNSPECIFIED FORMULATION
     Route: 048

REACTIONS (3)
  - Tachycardia [Unknown]
  - Suicide attempt [Unknown]
  - Intentional overdose [Unknown]

NARRATIVE: CASE EVENT DATE: 2016
